FAERS Safety Report 20906402 (Version 1)
Quarter: 2022Q2

REPORT INFORMATION
  Report Type: Spontaneous
  Country: US (occurrence: US)
  Receive Date: 20220602
  Receipt Date: 20220602
  Transmission Date: 20220721
  Serious: Yes (Hospitalization, Other)
  Sender: FDA-Public Use
  Company Number: US-GLENMARK PHARMACEUTICALS-2022GMK072673

PATIENT

DRUGS (5)
  1. EZETIMIBE [Suspect]
     Active Substance: EZETIMIBE
     Indication: Product used for unknown indication
     Dosage: UNK
     Route: 065
  2. JYNARQUE [Suspect]
     Active Substance: TOLVAPTAN
     Indication: Congenital cystic kidney disease
     Dosage: UNK
     Route: 065
     Dates: start: 20201104
  3. JYNARQUE [Suspect]
     Active Substance: TOLVAPTAN
     Dosage: 15 MILLIGRAM
     Route: 065
     Dates: start: 20201130
  4. JYNARQUE [Suspect]
     Active Substance: TOLVAPTAN
     Dosage: 45 MILLIGRAM
     Route: 065
     Dates: start: 20210907
  5. JYNARQUE [Suspect]
     Active Substance: TOLVAPTAN
     Dosage: 15 MILLIGRAM
     Route: 065
     Dates: start: 20210907

REACTIONS (4)
  - Blood sodium decreased [Unknown]
  - Renal impairment [Unknown]
  - Sinus disorder [Unknown]
  - Therapy interrupted [Unknown]

NARRATIVE: CASE EVENT DATE: 20210621
